FAERS Safety Report 7676422 (Version 5)
Quarter: 2012Q4

REPORT INFORMATION
  Report Type: 
  Country: US (occurrence: US)
  Receive Date: 20101119
  Receipt Date: 20121019
  Transmission Date: 20130627
  Serious: Yes (Hospitalization, Other)
  Sender: FDA-Public Use
  Company Number: US-US-EMD SERONO, INC.-7027503

PATIENT
  Age: 43 None
  Sex: Female
  Weight: 53 kg

DRUGS (11)
  1. REBIF [Suspect]
     Indication: MULTIPLE SCLEROSIS
     Route: 058
     Dates: start: 20030401, end: 201208
  2. GABAPENTIN [Concomitant]
     Indication: PAIN
  3. IMITREX [Concomitant]
     Indication: MIGRAINE
  4. PROTONIX [Concomitant]
     Indication: GASTROOESOPHAGEAL REFLUX DISEASE
  5. CALCIUM WITH VITAMIN D [Concomitant]
     Indication: SUPPLEMENTATION THERAPY
  6. OXYCODONE [Concomitant]
     Indication: PAIN
  7. CLONAZEPAM [Concomitant]
     Indication: INSOMNIA
  8. MOTRIN [Concomitant]
     Indication: PREMEDICATION
  9. PROMETHAZINE [Concomitant]
     Indication: PRODUCT USED FOR UNKNOWN INDICATION
  10. VITAMIIN D [Concomitant]
     Indication: SUPPLEMENTATION THERAPY
  11. MELATONIN [Concomitant]
     Indication: SLEEP DISORDER

REACTIONS (11)
  - Sarcoidosis [Recovering/Resolving]
  - Haemorrhage [Unknown]
  - Post procedural haemorrhage [Unknown]
  - Migraine [Unknown]
  - Pyrexia [Unknown]
  - Sinusitis [Unknown]
  - Blood potassium decreased [Unknown]
  - Feeling abnormal [Not Recovered/Not Resolved]
  - Constipation [Unknown]
  - Multiple sclerosis [Unknown]
  - Fatigue [Not Recovered/Not Resolved]
